FAERS Safety Report 7997375-3 (Version None)
Quarter: 2011Q4

REPORT INFORMATION
  Report Type: 
  Country: None (occurrence: None)
  Receive Date: 20111221
  Receipt Date: 20111215
  Transmission Date: 20120403
  Serious: Yes (Hospitalization)
  Sender: FDA-Public Use
  Company Number: ES-BAYER-2011-120437

PATIENT
  Age: 89 Year
  Sex: Female

DRUGS (2)
  1. ASPIRIN [Suspect]
     Dosage: 1 DF, HS
     Route: 048
     Dates: end: 20111204
  2. PLAVIX [Interacting]
     Dosage: 1 DF, HS
     Route: 048
     Dates: end: 20111204

REACTIONS (3)
  - UPPER GASTROINTESTINAL HAEMORRHAGE [None]
  - RECTAL HAEMORRHAGE [None]
  - ASTHENIA [None]
